FAERS Safety Report 16693104 (Version 1)
Quarter: 2019Q3

REPORT INFORMATION
  Report Type: Spontaneous
  Country: US (occurrence: US)
  Receive Date: 20190812
  Receipt Date: 20190812
  Transmission Date: 20191004
  Serious: No
  Sender: FDA-Public Use
  Company Number: US-VERTEX PHARMACEUTICALS-2019-007484

PATIENT
  Sex: Male

DRUGS (15)
  1. TOBRAMYCIN. [Concomitant]
     Active Substance: TOBRAMYCIN
  2. OMEPRAZOLE. [Concomitant]
     Active Substance: OMEPRAZOLE
  3. SYMDEKO [Suspect]
     Active Substance: IVACAFTOR\TEZACAFTOR
     Indication: CYSTIC FIBROSIS
     Dosage: 100MG TEZACAFTOR/150MG IVACAFTOR AM;150MG IVACAFTOR, PM
     Route: 048
     Dates: start: 201807
  4. NASONEX [Concomitant]
     Active Substance: MOMETASONE FUROATE
  5. VITAMIN E [Concomitant]
     Active Substance: .ALPHA.-TOCOPHEROL
  6. VENTOLIN [Concomitant]
     Active Substance: ALBUTEROL SULFATE
  7. BOOST [Concomitant]
     Active Substance: DIETARY SUPPLEMENT
  8. CALTRATE [Concomitant]
     Active Substance: CALCIUM CARBONATE
  9. PULMOZYME [Concomitant]
     Active Substance: DORNASE ALFA
  10. VITAMIN D [COLECALCIFEROL] [Concomitant]
     Active Substance: CHOLECALCIFEROL
  11. FLOVENT [Concomitant]
     Active Substance: FLUTICASONE PROPIONATE
  12. ALL DAY ALLERGY [Concomitant]
     Active Substance: CETIRIZINE HYDROCHLORIDE
  13. VITAMIN A [RETINOL] [Concomitant]
     Active Substance: RETINOL
  14. CAYSTON [Concomitant]
     Active Substance: AZTREONAM
  15. ALENDRONATE [Concomitant]
     Active Substance: ALENDRONATE SODIUM

REACTIONS (1)
  - Weight fluctuation [Unknown]

NARRATIVE: CASE EVENT DATE: 2019
